FAERS Safety Report 6026617-9 (Version None)
Quarter: 2008Q4

REPORT INFORMATION
  Report Type: 
  Country: None (occurrence: None)
  Receive Date: 20081231
  Receipt Date: 20081216
  Transmission Date: 20090506
  Serious: Yes (Death, Hospitalization)
  Sender: FDA-Public Use
  Company Number: KV200801217

PATIENT
  Age: 95 Year
  Sex: Female

DRUGS (1)
  1. PROPAFENONE HYDROCHLORIDE [Suspect]
     Indication: CARDIAC DISORDER
     Dosage: 150 MG, QD, ORAL
     Route: 048

REACTIONS (3)
  - CARDIAC FAILURE [None]
  - PNEUMONIA [None]
  - PRODUCT QUALITY ISSUE [None]
